FAERS Safety Report 9672378 (Version 1)
Quarter: 2013Q4

REPORT INFORMATION
  Report Type: Spontaneous
  Country: FR (occurrence: None)
  Receive Date: 20131105
  Receipt Date: 20131105
  Transmission Date: 20140711
  Serious: Yes (Hospitalization)
  Sender: FDA-Public Use
  Company Number: 1924628

PATIENT
  Age: 65 Year
  Sex: Female

DRUGS (7)
  1. (CARBOPLATIN) [Suspect]
     Indication: PRODUCT USED FOR UNKNOWN INDICATION
     Dosage: 575 MG MILLIGRAM(S),  1 WEEK, INTRAVENOUS DRIP
     Route: 041
     Dates: start: 20090824, end: 20110126
  2. (PACLITAXEL) [Concomitant]
  3. (INVESTIGATIONAL DRUG) [Concomitant]
  4. (PLACEBO) [Concomitant]
  5. XYZAL [Concomitant]
  6. SOLUPRED /00016201/) [Concomitant]
  7. (HYDROCORTISONE HEMISUCCINATE) [Concomitant]

REACTIONS (4)
  - Drug hypersensitivity [None]
  - Erythema [None]
  - Chest discomfort [None]
  - Laryngeal discomfort [None]
